FAERS Safety Report 5382676-8 (Version None)
Quarter: 2007Q3

REPORT INFORMATION
  Report Type: 
  Country: None (occurrence: None)
  Receive Date: 20070703
  Receipt Date: 20070703
  Transmission Date: 20080115
  Serious: Yes (Hospitalization)
  Sender: FDA-Public Use
  Company Number: None

PATIENT
  Sex: Female
  Weight: 47.73 kg

DRUGS (2)
  1. CARBOPLATIN [Suspect]
     Dosage: 574 MG
     Dates: end: 20070605
  2. TAXOL [Suspect]
     Dosage: 264 MG
     Dates: end: 20070605

REACTIONS (3)
  - NAUSEA [None]
  - ORAL INTAKE REDUCED [None]
  - VOMITING [None]
